FAERS Safety Report 4822457-4 (Version None)
Quarter: 2005Q4

REPORT INFORMATION
  Report Type: 
  Country: None (occurrence: None)
  Receive Date: 20051103
  Receipt Date: 20051103
  Transmission Date: 20060501
  Serious: Yes (Life-Threatening)
  Sender: FDA-Public Use
  Company Number: None

PATIENT
  Age: 73 Year
  Sex: Male
  Weight: 131.0895 kg

DRUGS (5)
  1. VANCOMYCIN [Suspect]
     Indication: WOUND INFECTION
     Dosage: 1 GRAM IV
     Route: 042
     Dates: start: 20050831
  2. WARFARIN [Concomitant]
  3. VERAPAMIL [Concomitant]
  4. FERROUS SULFATE TAB [Concomitant]
  5. MULTI-VITAMINS [Concomitant]

REACTIONS (1)
  - SWOLLEN TONGUE [None]
